FAERS Safety Report 9183679 (Version 1)
Quarter: 2013Q1

REPORT INFORMATION
  Report Type: Report from Study
  Country: US (occurrence: US)
  Receive Date: 20130322
  Receipt Date: 20130322
  Transmission Date: 20140127
  Serious: No
  Sender: FDA-Public Use
  Company Number: US-VERTEX PHARMACEUTICALS INC.-2013-003916

PATIENT
  Sex: Male

DRUGS (3)
  1. VX-770 [Suspect]
     Indication: CYSTIC FIBROSIS
     Dosage: 150MG
     Dates: end: 20130225
  2. PROTEIN SUPPLEMENTS [Concomitant]
     Dosage: 300 MG, QD
  3. PROTEIN SUPPLEMENTS [Concomitant]
     Dosage: 225 MG, QD

REACTIONS (2)
  - Dyspepsia [Unknown]
  - Liver function test abnormal [Recovered/Resolved]
